FAERS Safety Report 5071510-1 (Version None)
Quarter: 2006Q3

REPORT INFORMATION
  Report Type: 
  Country: None (occurrence: None)
  Receive Date: 20060801
  Receipt Date: 20060719
  Transmission Date: 20061208
  Serious: Yes (Hospitalization)
  Sender: FDA-Public Use
  Company Number: 2006BI009434

PATIENT
  Age: 49 Year
  Sex: Female

DRUGS (5)
  1. AVONEX [Suspect]
     Indication: MULTIPLE SCLEROSIS
     Dosage: 30 UG;QW;IM
     Route: 030
     Dates: start: 20041105
  2. LYRICA [Concomitant]
  3. KLONOPIN [Concomitant]
  4. SANCTURA [Concomitant]
  5. REQUIP [Concomitant]

REACTIONS (1)
  - NEPHROLITHIASIS [None]
